FAERS Safety Report 5368734-2 (Version None)
Quarter: 2007Q2

REPORT INFORMATION
  Report Type: 
  Country: None (occurrence: None)
  Receive Date: 20070625
  Receipt Date: 20070510
  Transmission Date: 20071010
  Serious: No
  Sender: FDA-Public Use
  Company Number: US-BRISTOL-MYERS SQUIBB COMPANY-13775903

PATIENT
  Age: 47 Year
  Sex: Female
  Weight: 46 kg

DRUGS (13)
  1. ORENCIA [Suspect]
     Indication: RHEUMATOID ARTHRITIS
     Dates: start: 20070413
  2. PREDNISONE TAB [Concomitant]
  3. AMBIEN [Concomitant]
  4. PROVIGIL [Concomitant]
  5. FOLIC ACID [Concomitant]
  6. VICODIN [Concomitant]
  7. METHOTREXATE [Concomitant]
  8. DETROL LA [Concomitant]
  9. MS CONTIN [Concomitant]
  10. ZOFRAN [Concomitant]
  11. LEXAPRO [Concomitant]
  12. DULCOLAX [Concomitant]
  13. SUDAFED 12 HOUR [Concomitant]

REACTIONS (1)
  - MYDRIASIS [None]
